FAERS Safety Report 9578787 (Version 1)
Quarter: 2013Q4

REPORT INFORMATION
  Report Type: Spontaneous
  Country: US (occurrence: US)
  Receive Date: 20131001
  Receipt Date: 20131001
  Transmission Date: 20140711
  Serious: No
  Sender: FDA-Public Use
  Company Number: US-AMGEN-USASP2013015224

PATIENT
  Age: 50 Year
  Sex: Female
  Weight: 71.2 kg

DRUGS (10)
  1. ENBREL [Suspect]
     Indication: PRODUCT USED FOR UNKNOWN INDICATION
     Dosage: 50 MG/ML, QWK
     Route: 058
  2. TYLENOL                            /00020001/ [Concomitant]
     Dosage: 500 MG/RR
  3. PREDNISONE [Concomitant]
     Dosage: 10 MG, UNK
  4. AMOXICILLIN [Concomitant]
     Dosage: 500 MG, UNK
  5. METHOTREXATE [Concomitant]
     Dosage: 2.5 MG, UNK
  6. FOLIC ACID [Concomitant]
     Dosage: UNK
  7. OMEGA 3                            /01334101/ [Concomitant]
     Dosage: UNK
  8. VITAMIN D                          /00107901/ [Concomitant]
     Dosage: 400 UNIT, UNK
  9. VITAMIN C                          /00008001/ [Concomitant]
     Dosage: 500 MG, UNK
  10. MULTIVITAMINS, PLAIN [Concomitant]
     Dosage: UNK

REACTIONS (4)
  - Injection site pain [Unknown]
  - Injection site bruising [Unknown]
  - Nasopharyngitis [Unknown]
  - Chest pain [Unknown]
